FAERS Safety Report 8204953-5 (Version None)
Quarter: 2012Q1

REPORT INFORMATION
  Report Type: 
  Country: None (occurrence: None)
  Receive Date: 20120313
  Receipt Date: 20120307
  Transmission Date: 20120608
  Serious: Yes (Other)
  Sender: FDA-Public Use
  Company Number: US-PFIZER INC-2012061583

PATIENT
  Sex: Female
  Weight: 52.2 kg

DRUGS (5)
  1. ESTRING [Suspect]
     Indication: HORMONE REPLACEMENT THERAPY
     Dosage: 2 MG, EVERY 3 MONTHS
     Route: 067
     Dates: start: 20111221
  2. MAXZIDE [Concomitant]
     Dosage: UNK
  3. BENTYL [Concomitant]
     Dosage: 10 MG, UNK
  4. UROQID-ACID [Concomitant]
     Dosage: UNK
  5. VERAPAMIL [Concomitant]
     Dosage: UNK

REACTIONS (1)
  - URINARY TRACT INFECTION [None]
